FAERS Safety Report 10963259 (Version 1)
Quarter: 2015Q1

REPORT INFORMATION
  Report Type: Spontaneous
  Country: US (occurrence: US)
  Receive Date: 20150205
  Receipt Date: 20150205
  Transmission Date: 20150721
  Serious: Yes (Death)
  Sender: FDA-Public Use
  Company Number: US-APOTEX-2015AP006223

PATIENT
  Sex: Female

DRUGS (3)
  1. ZOLPIDEM TARTRATE. [Suspect]
     Active Substance: ZOLPIDEM TARTRATE
  2. BUPROPION HYDROCHLORIDE. [Suspect]
     Active Substance: BUPROPION HYDROCHLORIDE
  3. OXYCODONE [Suspect]
     Active Substance: OXYCODONE

REACTIONS (1)
  - Intentional product misuse [Fatal]
